FAERS Safety Report 11130083 (Version 5)
Quarter: 2016Q1

REPORT INFORMATION
  Report Type: Report from Study
  Country: NL (occurrence: NL)
  Receive Date: 20150521
  Receipt Date: 20160318
  Transmission Date: 20160525
  Serious: Yes (Hospitalization)
  Sender: FDA-Public Use
  Company Number: PHHO2015NL000871

PATIENT
  Age: 44 Year
  Sex: Male
  Weight: 66.5 kg

DRUGS (4)
  1. LDK378 [Suspect]
     Active Substance: CERITINIB
     Dosage: 600 MG, QD
     Route: 048
     Dates: start: 20150506, end: 20150515
  2. LDK378 [Suspect]
     Active Substance: CERITINIB
     Indication: NON-SMALL CELL LUNG CANCER
     Dosage: 750 MG, QD
     Route: 048
     Dates: start: 20130716, end: 20150126
  3. LDK378 [Suspect]
     Active Substance: CERITINIB
     Dosage: 750 MG, QD
     Route: 048
     Dates: start: 20150203, end: 20150420
  4. OXYCONTIN [Suspect]
     Active Substance: OXYCODONE HYDROCHLORIDE
     Indication: MUSCULOSKELETAL PAIN
     Dosage: 10 MG, UNK
     Route: 048
     Dates: start: 20141230, end: 20150112

REACTIONS (6)
  - Renal impairment [Recovered/Resolved]
  - Retroperitoneal fibrosis [Not Recovered/Not Resolved]
  - Dehydration [Recovered/Resolved]
  - Blood calcium increased [Unknown]
  - Malaise [Recovered/Resolved]
  - Renal impairment [Unknown]

NARRATIVE: CASE EVENT DATE: 20150112
